FAERS Safety Report 8701821 (Version 2)
Quarter: 2015Q1

REPORT INFORMATION
  Report Type: Spontaneous
  Country: DE (occurrence: DE)
  Receive Date: 20120803
  Receipt Date: 20150202
  Transmission Date: 20150721
  Serious: Yes (Other)
  Sender: FDA-Public Use
  Company Number: DE-RANBAXY-2012R1-58561

PATIENT
  Age: 82 Year
  Sex: Female

DRUGS (4)
  1. HERBAL NOS [Suspect]
     Active Substance: HERBALS
     Indication: PRODUCT USED FOR UNKNOWN INDICATION
     Route: 065
  2. BISOPROLOL [Concomitant]
     Active Substance: BISOPROLOL
     Indication: PRODUCT USED FOR UNKNOWN INDICATION
     Route: 065
  3. RAMIPRIL. [Concomitant]
     Active Substance: RAMIPRIL
     Indication: PRODUCT USED FOR UNKNOWN INDICATION
     Route: 065
  4. AMOXICILLIN. [Suspect]
     Active Substance: AMOXICILLIN
     Indication: SINUSITIS
     Dosage: UNK
     Route: 065
     Dates: start: 20100813, end: 20100820

REACTIONS (1)
  - Hepatotoxicity [Recovering/Resolving]
